FAERS Safety Report 5113493-1 (Version None)
Quarter: 2006Q3

REPORT INFORMATION
  Report Type: 
  Country: None (occurrence: None)
  Receive Date: 20060921
  Receipt Date: 20060921
  Transmission Date: 20061208
  Serious: Yes (Hospitalization)
  Sender: FDA-Public Use
  Company Number: None

PATIENT
  Sex: Male
  Weight: 107 kg

DRUGS (5)
  1. CYCLOPHOSPHAMIDE [Suspect]
     Dosage: 2640 MG
  2. DAUNORUBICIN HCL [Suspect]
     Dosage: 528 MG
  3. DEXAMETHASONE TAB [Suspect]
     Dosage: 140 MG
  4. L-ASPARAGINASE [Suspect]
     Dosage: 26400 UNIT
  5. VINCRISTINE SULFATE [Suspect]
     Dosage: 4 MG

REACTIONS (10)
  - APHASIA [None]
  - ASTHENIA [None]
  - DEAFNESS UNILATERAL [None]
  - GAZE PALSY [None]
  - HYPOTENSION [None]
  - HYPOVENTILATION [None]
  - LETHARGY [None]
  - NEUROLOGICAL SYMPTOM [None]
  - PYREXIA [None]
  - STAPHYLOCOCCAL INFECTION [None]
